FAERS Safety Report 15978695 (Version 1)
Quarter: 2019Q1

REPORT INFORMATION
  Report Type: Spontaneous
  Country: US (occurrence: US)
  Receive Date: 20190219
  Receipt Date: 20190219
  Transmission Date: 20190418
  Serious: No
  Sender: FDA-Public Use
  Company Number: US-009507513-1902USA007097

PATIENT
  Age: 33 Year
  Sex: Female

DRUGS (1)
  1. INTRON A [Suspect]
     Active Substance: INTERFERON ALFA-2B
     Indication: CHRONIC MYELOID LEUKAEMIA
     Dosage: STRENGTH: 6 MMU/ML (18 MMU/MDV), DOSE: 0.5 MILLILITER, DAILY
     Route: 058
     Dates: start: 201902

REACTIONS (1)
  - Administration site pain [Unknown]

NARRATIVE: CASE EVENT DATE: 201902
